FAERS Safety Report 5644359-6 (Version None)
Quarter: 2008Q1

REPORT INFORMATION
  Report Type: 
  Country: None (occurrence: None)
  Receive Date: 20080229
  Receipt Date: 20080226
  Transmission Date: 20080703
  Serious: Yes (Hospitalization)
  Sender: FDA-Public Use
  Company Number: JP-BRISTOL-MYERS SQUIBB COMPANY-14093587

PATIENT
  Age: 22 Year
  Sex: Male

DRUGS (2)
  1. PARAPLATIN [Suspect]
     Indication: BRAIN NEOPLASM
     Route: 041
     Dates: start: 20071127, end: 20080108
  2. LASTET [Concomitant]
     Indication: BRAIN NEOPLASM
     Route: 041
     Dates: start: 20071127, end: 20080110

REACTIONS (1)
  - TREMOR [None]
